FAERS Safety Report 6297903-2 (Version None)
Quarter: 2009Q3

REPORT INFORMATION
  Report Type: 
  Country: None (occurrence: None)
  Receive Date: 20090805
  Receipt Date: 20090731
  Transmission Date: 20100115
  Serious: Yes (Hospitalization, Congenital Anomaly)
  Sender: FDA-Public Use
  Company Number: A0680521A

PATIENT
  Sex: Female

DRUGS (7)
  1. PAXIL [Suspect]
     Indication: DEPRESSION
     Dosage: 20MG PER DAY
     Dates: start: 20000101, end: 20000601
  2. PAROXETINE [Suspect]
     Indication: DEPRESSION
     Dosage: 20MG PER DAY
     Dates: start: 20000101, end: 20000101
  3. PHENERGAN [Concomitant]
  4. DILAUDID [Concomitant]
  5. BENADRYL [Concomitant]
  6. COGENTIN [Concomitant]
  7. VITAMIN TAB [Concomitant]
     Indication: PREGNANCY
     Dates: start: 19990101, end: 20000101

REACTIONS (6)
  - COARCTATION OF THE AORTA [None]
  - DRUG EXPOSURE DURING PREGNANCY [None]
  - HEART DISEASE CONGENITAL [None]
  - LEFT VENTRICULAR DYSFUNCTION [None]
  - MULTIPLE CONGENITAL ABNORMALITIES [None]
  - PATENT DUCTUS ARTERIOSUS [None]
